FAERS Safety Report 6376438-2 (Version None)
Quarter: 2009Q3

REPORT INFORMATION
  Report Type: 
  Country: None (occurrence: None)
  Receive Date: 20090922
  Receipt Date: 20090922
  Transmission Date: 20100115
  Serious: Yes (Disabling)
  Sender: FDA-Public Use
  Company Number: None

PATIENT
  Age: 38 Year
  Sex: Male
  Weight: 88.4514 kg

DRUGS (1)
  1. CHANTIX [Suspect]
     Indication: SMOKING CESSATION THERAPY
     Dosage: 2X A DAY
     Dates: start: 20090701, end: 20090731

REACTIONS (3)
  - ANGER [None]
  - LOSS OF EMPLOYMENT [None]
  - SUICIDE ATTEMPT [None]
